FAERS Safety Report 5229336-1 (Version None)
Quarter: 2007Q1

REPORT INFORMATION
  Report Type: 
  Country: None (occurrence: None)
  Receive Date: 20061201
  Receipt Date: 20051103
  Transmission Date: 20070707
  Serious: Yes (Hospitalization)
  Sender: FDA-Public Use
  Company Number: 2005-134297-NL

PATIENT
  Age: 18 Year
  Sex: Female
  Weight: 95 kg

DRUGS (3)
  1. NUVARING [Suspect]
     Indication: DYSMENORRHOEA
     Dosage: VAGINAL
     Route: 067
     Dates: start: 20050628, end: 20050901
  2. LEXAPRO [Concomitant]
  3. SINGULAIR [Concomitant]

REACTIONS (2)
  - DEEP VEIN THROMBOSIS [None]
  - PULMONARY EMBOLISM [None]
